FAERS Safety Report 6583402-7 (Version None)
Quarter: 2010Q1

REPORT INFORMATION
  Report Type: 
  Country: None (occurrence: None)
  Receive Date: 20100216
  Receipt Date: 20100202
  Transmission Date: 20100710
  Serious: Yes (Life-Threatening, Hospitalization)
  Sender: FDA-Public Use
  Company Number: AU-MYLANLABS-2010S1001620

PATIENT
  Age: 26 Year
  Sex: Female

DRUGS (1)
  1. VALPROIC ACID [Suspect]
     Route: 048

REACTIONS (5)
  - BRAIN OEDEMA [None]
  - COMA [None]
  - GRAND MAL CONVULSION [None]
  - HYPERAMMONAEMIA [None]
  - OVERDOSE [None]
